FAERS Safety Report 19277849 (Version 2)
Quarter: 2021Q2

REPORT INFORMATION
  Report Type: Other
  Country: US (occurrence: US)
  Receive Date: 20210520
  Receipt Date: 20210521
  Transmission Date: 20210717
  Serious: Yes (Death)
  Sender: FDA-Public Use
  Company Number: US-ROCHE-2813416

PATIENT
  Age: 58 Year
  Sex: Male

DRUGS (3)
  1. OCREVUS [Suspect]
     Active Substance: OCRELIZUMAB
     Dosage: 300MG IV Q 14 DAY CYCLE PER INFUSION PROTOCOL
     Route: 042
  2. OCREVUS [Suspect]
     Active Substance: OCRELIZUMAB
     Indication: PRIMARY PROGRESSIVE MULTIPLE SCLEROSIS
     Dosage: ONGOING: NO?DOT: 16/JAN/2020
     Route: 065
     Dates: start: 20191230, end: 20200804
  3. OCREVUS [Suspect]
     Active Substance: OCRELIZUMAB
     Dosage: 600MG IV Q6 MONTH PER INFUSION PROTOCOL
     Route: 042

REACTIONS (1)
  - Appendicitis perforated [Fatal]

NARRATIVE: CASE EVENT DATE: 20210215
